FAERS Safety Report 26169400 (Version 1)
Quarter: 2025Q4

REPORT INFORMATION
  Report Type: Spontaneous
  Country: CN (occurrence: CN)
  Receive Date: 20251217
  Receipt Date: 20251217
  Transmission Date: 20260118
  Serious: Yes (Other)
  Sender: NOVARTIS
  Company Number: CN-002147023-NVSC2025CN192163

PATIENT
  Age: 60 Year
  Sex: Female
  Weight: 50 kg

DRUGS (1)
  1. TRAVOPROST [Suspect]
     Active Substance: TRAVOPROST
     Indication: Intraocular pressure increased
     Dosage: 1.000 DRP, QD
     Route: 047
     Dates: start: 20251208, end: 20251209

REACTIONS (5)
  - Corneal opacity [Recovering/Resolving]
  - Application site erythema [Recovering/Resolving]
  - Application site swelling [Recovering/Resolving]
  - Eye oedema [Recovering/Resolving]
  - Conjunctival hyperaemia [Recovering/Resolving]

NARRATIVE: CASE EVENT DATE: 20251209
